FAERS Safety Report 9198978 (Version 2)
Quarter: 2013Q1

REPORT INFORMATION
  Report Type: Spontaneous
  Country: US (occurrence: None)
  Receive Date: 20130325
  Receipt Date: 20130325
  Transmission Date: 20140127
  Serious: No
  Sender: FDA-Public Use
  Company Number: 2013US-004583

PATIENT
  Age: 79 Year
  Sex: Female

DRUGS (5)
  1. OMONTYS (PEGINESATIDE) SOLUTION FOR INJECTION [Suspect]
     Indication: NEPHROGENIC ANAEMIA
     Route: 042
     Dates: start: 20130209, end: 20130209
  2. RENAL VITAMINS [Concomitant]
  3. METOPROLOL [Concomitant]
  4. RENVELA (SEVELAMER CARBONATE) [Concomitant]
  5. EPOGEN (EPOETIN ALFA) [Concomitant]

REACTIONS (4)
  - Hypotension [None]
  - Dyspnoea [None]
  - Hypertension [None]
  - Heart rate increased [None]
